FAERS Safety Report 8028723-6 (Version None)
Quarter: 2012Q1

REPORT INFORMATION
  Report Type: 
  Country: None (occurrence: None)
  Receive Date: 20120106
  Receipt Date: 20111230
  Transmission Date: 20120608
  Serious: No
  Sender: FDA-Public Use
  Company Number: US-B.I. PHARMACEUTICALS,INC./RIDGEFIELD-2012-BP-00022BP

PATIENT
  Sex: Female

DRUGS (5)
  1. MULTI-VITAMIN [Concomitant]
     Indication: SUPPLEMENTATION THERAPY
     Route: 048
  2. COMBIVENT [Suspect]
     Indication: CHRONIC OBSTRUCTIVE PULMONARY DISEASE
     Dosage: 4 PUF
     Route: 055
     Dates: start: 20080101
  3. SIMVASTATIN [Concomitant]
     Indication: BLOOD CHOLESTEROL INCREASED
     Dosage: 40 MG
     Route: 048
     Dates: start: 20080101
  4. ZOLOFT [Concomitant]
     Indication: DEPRESSION
     Dosage: 50 MG
     Route: 048
     Dates: start: 20000101
  5. FISH OIL [Concomitant]
     Indication: SUPPLEMENTATION THERAPY
     Route: 048

REACTIONS (2)
  - COUGH [None]
  - RETCHING [None]
